FAERS Safety Report 8470827-8 (Version None)
Quarter: 2012Q2

REPORT INFORMATION
  Report Type: 
  Country: None (occurrence: None)
  Receive Date: 20120627
  Receipt Date: 20120620
  Transmission Date: 20120825
  Serious: Yes (Other)
  Sender: FDA-Public Use
  Company Number: GB-PFIZER INC-2012150395

PATIENT
  Age: 35 Year
  Sex: Female

DRUGS (2)
  1. MODAFINIL [Suspect]
  2. DEPO-PROVERA [Suspect]

REACTIONS (1)
  - HAEMORRHAGE [None]
